FAERS Safety Report 8785699 (Version 5)
Quarter: 2013Q1

REPORT INFORMATION
  Report Type: Spontaneous
  Country: US (occurrence: US)
  Receive Date: 20120914
  Receipt Date: 20130201
  Transmission Date: 20140127
  Serious: Yes (Other)
  Sender: FDA-Public Use
  Company Number: US-JNJFOC-20120902227

PATIENT
  Sex: Male
  Weight: 101.61 kg

DRUGS (16)
  1. INTELENCE [Suspect]
     Indication: HIV INFECTION
     Route: 048
  2. INTELENCE [Suspect]
     Indication: HIV INFECTION
     Dosage: 100 MG 2 TABLETS, TWICE A DAY
     Route: 048
  3. INTELENCE [Suspect]
     Indication: HIV INFECTION
     Route: 048
     Dates: start: 20090818
  4. INTELENCE [Suspect]
     Indication: HIV INFECTION
     Route: 048
  5. INTELENCE [Suspect]
     Indication: HIV INFECTION
     Dosage: DOSE REDUCED
     Route: 048
  6. ISENTRESS [Suspect]
     Indication: HIV INFECTION
     Route: 048
     Dates: start: 20090818
  7. FLOMAX [Suspect]
     Indication: PROSTATOMEGALY
     Route: 065
  8. ALL OTHER THERAPEUTICS [Suspect]
     Indication: HIV INFECTION
     Route: 065
  9. NORVIR [Suspect]
     Indication: HIV INFECTION
     Route: 065
     Dates: end: 2007
  10. EMTRIVA [Concomitant]
     Indication: HIV INFECTION
     Route: 048
     Dates: start: 20090818
  11. VICODIN [Concomitant]
     Indication: PAIN
     Dosage: 5/500 MG
     Route: 048
     Dates: start: 2000
  12. TRAMADOL [Concomitant]
     Indication: MIGRAINE
     Route: 065
  13. ALCOHOL [Concomitant]
     Indication: PRODUCT USED FOR UNKNOWN INDICATION
     Route: 065
  14. IBUPROFEN [Concomitant]
     Indication: PAIN
     Dosage: AS NECESSARY
     Route: 048
     Dates: start: 2000
  15. GABAPENTIN [Concomitant]
     Indication: NEUROPATHY PERIPHERAL
     Route: 065
  16. VALIUM [Concomitant]
     Indication: ANXIETY
     Dosage: AT 21 YEARS AGE
     Route: 048
     Dates: start: 2000

REACTIONS (7)
  - Prostatomegaly [Not Recovered/Not Resolved]
  - Oral disorder [Not Recovered/Not Resolved]
  - Tablet physical issue [Unknown]
  - Lip blister [Not Recovered/Not Resolved]
  - Erectile dysfunction [Not Recovered/Not Resolved]
  - Urinary tract infection [Not Recovered/Not Resolved]
  - Blood urine present [Recovered/Resolved]
